FAERS Safety Report 25069262 (Version 1)
Quarter: 2025Q1

REPORT INFORMATION
  Report Type: Spontaneous
  Country: DE (occurrence: DE)
  Receive Date: 20250312
  Receipt Date: 20250312
  Transmission Date: 20250409
  Serious: Yes (Other)
  Sender: MYLAN
  Company Number: DE-MYLANLABS-2025M1020339

PATIENT
  Sex: Female

DRUGS (4)
  1. LATANOPROST [Suspect]
     Active Substance: LATANOPROST
     Indication: Product used for unknown indication
  2. LATANOPROST [Suspect]
     Active Substance: LATANOPROST
     Route: 047
  3. LATANOPROST [Suspect]
     Active Substance: LATANOPROST
     Route: 047
  4. LATANOPROST [Suspect]
     Active Substance: LATANOPROST

REACTIONS (2)
  - Loss of consciousness [Unknown]
  - Chest discomfort [Unknown]
